APPROVED DRUG PRODUCT: AVERI
Active Ingredient: DESOGESTREL; ETHINYL ESTRADIOL
Strength: 0.15MG;0.03MG
Dosage Form/Route: TABLET;ORAL-28
Application: A218933 | Product #002 | TE Code: AB
Applicant: AVION PHARMACEUTICALS LLC
Approved: May 2, 2025 | RLD: No | RS: No | Type: RX